FAERS Safety Report 22659754 (Version 1)
Quarter: 2023Q2

REPORT INFORMATION
  Report Type: Spontaneous
  Country: US (occurrence: None)
  Receive Date: 20230622
  Receipt Date: 20230622
  Transmission Date: 20230721
  Serious: Yes (Life-Threatening, Hospitalization, Other)
  Sender: FDA-Public Use
  Company Number: None

PATIENT
  Age: 62 Year
  Sex: Male
  Weight: 68.04 kg

DRUGS (1)
  1. MAGNEVIST [Suspect]
     Active Substance: GADOPENTETATE DIMEGLUMINE
     Indication: Magnetic resonance imaging
     Dosage: OTHER QUANTITY : INJECTIONS;?
     Route: 042
     Dates: start: 20090612, end: 20090612

REACTIONS (5)
  - Contrast media toxicity [None]
  - Injury [None]
  - Product use complaint [None]
  - Product complaint [None]
  - Product complaint [None]

NARRATIVE: CASE EVENT DATE: 20090612
